FAERS Safety Report 11191397 (Version 3)
Quarter: 2016Q1

REPORT INFORMATION
  Report Type: Report from Study
  Country: BR (occurrence: BR)
  Receive Date: 20150616
  Receipt Date: 20160209
  Transmission Date: 20160525
  Serious: Yes (Hospitalization, Other)
  Sender: FDA-Public Use
  Company Number: PHHO2015BR010332

PATIENT
  Age: 45 Year
  Sex: Female
  Weight: 89.2 kg

DRUGS (2)
  1. SOM230 [Suspect]
     Active Substance: PASIREOTIDE
     Indication: PITUITARY-DEPENDENT CUSHING^S SYNDROME
     Dosage: 0.9 MG, BID
     Route: 058
     Dates: start: 20131113, end: 20150608
  2. SOM230 [Suspect]
     Active Substance: PASIREOTIDE
     Dosage: 0.9 MG, BID
     Route: 058
     Dates: start: 20150614

REACTIONS (2)
  - Cholecystitis acute [Recovering/Resolving]
  - Bile duct stone [Recovering/Resolving]

NARRATIVE: CASE EVENT DATE: 20150608
